FAERS Safety Report 4803228-1 (Version None)
Quarter: 2005Q4

REPORT INFORMATION
  Report Type: 
  Country: None (occurrence: None)
  Receive Date: 20051013
  Receipt Date: 20021106
  Transmission Date: 20060501
  Serious: Yes (Hospitalization)
  Sender: FDA-Public Use
  Company Number: 085-02

PATIENT
  Age: 93 Year
  Sex: Female

DRUGS (10)
  1. ORPHENADRINE CITRATE [Suspect]
     Indication: BACK PAIN
     Dosage: 100 MG PO BID
     Route: 048
     Dates: start: 20020729, end: 20020801
  2. ORPHENADRINE CITRATE [Suspect]
     Indication: MUSCLE RELAXANT THERAPY
     Dosage: 100 MG PO BID
     Route: 048
     Dates: start: 20020729, end: 20020801
  3. NORVASC [Concomitant]
  4. FUROSEMIDE [Concomitant]
  5. VIOXX [Concomitant]
  6. ISOSORBIDE [Concomitant]
  7. KLOR-CON [Concomitant]
  8. ATENOLOL [Concomitant]
  9. MECLIZINE [Concomitant]
  10. ^WATER PILL^ [Concomitant]

REACTIONS (5)
  - DIZZINESS [None]
  - DYSSTASIA [None]
  - FALL [None]
  - HALLUCINATION [None]
  - TREMOR [None]
